FAERS Safety Report 6819997-5 (Version None)
Quarter: 2010Q3

REPORT INFORMATION
  Report Type: 
  Country: None (occurrence: None)
  Receive Date: 20100707
  Receipt Date: 20100701
  Transmission Date: 20110219
  Serious: Yes (Life-Threatening, Hospitalization)
  Sender: FDA-Public Use
  Company Number: CL-ROCHE-712926

PATIENT
  Sex: Female
  Weight: 72 kg

DRUGS (5)
  1. CAPECITABINE [Suspect]
     Indication: BREAST CANCER
     Route: 048
     Dates: start: 20100211
  2. METFORMIN HCL [Concomitant]
  3. ENALAPRIL MALEATE [Concomitant]
     Indication: HYPERTENSION
     Route: 048
  4. TRAMADOL [Concomitant]
     Route: 048
  5. PYRIDOXINE HCL [Concomitant]
     Route: 048

REACTIONS (2)
  - INFECTION [None]
  - RESPIRATORY ARREST [None]
